FAERS Safety Report 10521018 (Version 3)
Quarter: 2014Q4

REPORT INFORMATION
  Report Type: Report from Study
  Country: IE (occurrence: IE)
  Receive Date: 20141016
  Receipt Date: 20141024
  Transmission Date: 20150528
  Serious: Yes (Hospitalization)
  Sender: FDA-Public Use
  Company Number: IE-ROCHE-1451598

PATIENT
  Age: 72 Year
  Sex: Male
  Weight: 86 kg

DRUGS (30)
  1. PARACETAMOL [Concomitant]
     Active Substance: ACETAMINOPHEN
     Dosage: FREQUENCY: 30 MIN PRIOR TO EACH OBINUTUZUMAB DOSE
     Route: 048
     Dates: start: 20140812, end: 20140812
  2. DEXAMETHASONE. [Concomitant]
     Active Substance: DEXAMETHASONE
     Dosage: FREQUENCY: 1 HOUR PRIOR TO EACH OBINUTUZUMAB DOSE
     Route: 042
     Dates: start: 20130812
  3. DIAMICRON [Concomitant]
     Active Substance: GLICLAZIDE
     Route: 048
     Dates: start: 201402
  4. OBINUTUZUMAB [Suspect]
     Active Substance: OBINUTUZUMAB
     Route: 042
     Dates: start: 20140909
  5. CHLORPHENAMINE [Concomitant]
     Active Substance: CHLORPHENIRAMINE MALEATE
     Dosage: FREQUENCY: 30 MIN PRIOR TO EACH OBINUTUZUMAB DOSE
     Route: 042
     Dates: start: 20140812
  6. LERCANIDIPINE TEVA [Concomitant]
     Dosage: OD
     Route: 048
     Dates: start: 201402, end: 20140818
  7. BISOPROLOL [Concomitant]
     Active Substance: BISOPROLOL
     Dosage: SINGLE DOSE
     Route: 048
     Dates: start: 20140812, end: 20140812
  8. OBINUTUZUMAB [Suspect]
     Active Substance: OBINUTUZUMAB
     Dosage: DATE OF LAST DOSE PRIOR TO SAE: 13/AUG/2014.
     Route: 042
     Dates: start: 20140813
  9. CHLORAMBUCIL [Suspect]
     Active Substance: CHLORAMBUCIL
     Route: 048
     Dates: start: 20140826
  10. ATORVASTATIN [Concomitant]
     Active Substance: ATORVASTATIN
     Route: 065
     Dates: start: 1985
  11. ATORVASTATIN [Concomitant]
     Active Substance: ATORVASTATIN
     Dosage: ONCE A DAY
     Route: 048
     Dates: start: 1985
  12. PROSCAR [Concomitant]
     Active Substance: FINASTERIDE
     Route: 048
     Dates: start: 201010
  13. HYDROCORTISONE. [Concomitant]
     Active Substance: HYDROCORTISONE
     Dosage: SINGLE DOSE
     Route: 042
     Dates: start: 20140812, end: 20140812
  14. LERCANIDIPINE TEVA [Concomitant]
     Route: 048
     Dates: start: 201402, end: 20140819
  15. OBINUTUZUMAB [Suspect]
     Active Substance: OBINUTUZUMAB
     Route: 042
     Dates: start: 20140819
  16. CHLORAMBUCIL [Suspect]
     Active Substance: CHLORAMBUCIL
     Route: 048
     Dates: start: 20140909
  17. LANTUS [Concomitant]
     Active Substance: INSULIN GLARGINE
     Dosage: 48 UNITS
     Route: 058
     Dates: start: 20140819
  18. LANTUS [Concomitant]
     Active Substance: INSULIN GLARGINE
     Dosage: 46 UNITS AT NIGHT
     Route: 065
     Dates: start: 20140808, end: 20140818
  19. OBINUTUZUMAB [Suspect]
     Active Substance: OBINUTUZUMAB
     Indication: CHRONIC LYMPHOCYTIC LEUKAEMIA
     Route: 042
     Dates: start: 20140812
  20. CHLORAMBUCIL [Suspect]
     Active Substance: CHLORAMBUCIL
     Indication: CHRONIC LYMPHOCYTIC LEUKAEMIA
     Dosage: DATE OF LAST DOSE (40MG) PRIOR TO SAE: 12/AUG/2014
     Route: 048
     Dates: start: 20140812
  21. LANTUS [Concomitant]
     Active Substance: INSULIN GLARGINE
     Route: 058
     Dates: start: 20140806, end: 20140814
  22. BURINEX [Concomitant]
     Active Substance: BUMETANIDE
     Route: 048
     Dates: start: 2004
  23. PANTOPRAZOLE [Concomitant]
     Active Substance: PANTOPRAZOLE SODIUM
     Route: 048
     Dates: start: 20140811
  24. ACCUPRO [Concomitant]
     Active Substance: QUINAPRIL HYDROCHLORIDE
     Route: 048
     Dates: start: 1980, end: 201408
  25. OBINUTUZUMAB [Suspect]
     Active Substance: OBINUTUZUMAB
     Route: 042
     Dates: start: 20140813
  26. CHLORAMBUCIL [Suspect]
     Active Substance: CHLORAMBUCIL
     Route: 048
     Dates: start: 20140923
  27. OMNEXEL [Concomitant]
     Route: 048
     Dates: start: 201010
  28. ALLOPURINOL. [Concomitant]
     Active Substance: ALLOPURINOL
     Route: 048
     Dates: start: 20140811
  29. BISOPROLOL [Concomitant]
     Active Substance: BISOPROLOL
     Route: 048
     Dates: start: 2004, end: 20140811
  30. RED BLOOD CELLS [Concomitant]
     Active Substance: HUMAN RED BLOOD CELL
     Dosage: SINGLE DOSE
     Route: 042
     Dates: start: 20140902, end: 20140902

REACTIONS (1)
  - Hyperglycaemia [Recovered/Resolved]

NARRATIVE: CASE EVENT DATE: 20140814
